FAERS Safety Report 21364542 (Version 2)
Quarter: 2022Q4

REPORT INFORMATION
  Report Type: Report from Study
  Country: US (occurrence: US)
  Receive Date: 20220922
  Receipt Date: 20221026
  Transmission Date: 20230112
  Serious: Yes (Hospitalization, Other)
  Sender: FDA-Public Use
  Company Number: US-ABBVIE-4128532

PATIENT
  Sex: Female

DRUGS (1)
  1. HUMIRA [Suspect]
     Active Substance: ADALIMUMAB
     Indication: Crohn^s disease
     Dosage: CITRATE FREE?FORM STRENGTH 40 MILLIGRAM?LAST ADMINISTRATION DATE WAS 2022.
     Route: 058

REACTIONS (6)
  - Gastrointestinal disorder [Unknown]
  - Dyslexia [Unknown]
  - Crohn^s disease [Unknown]
  - Insomnia [Unknown]
  - Post procedural complication [Unknown]
  - Hypophagia [Unknown]

NARRATIVE: CASE EVENT DATE: 20220101
